FAERS Safety Report 4279213-8 (Version None)
Quarter: 2004Q1

REPORT INFORMATION
  Report Type: 
  Country: None (occurrence: None)
  Receive Date: 20040123
  Receipt Date: 20040108
  Transmission Date: 20041129
  Serious: Yes (Hospitalization, Other)
  Sender: FDA-Public Use
  Company Number: US-SHR-04-019598

PATIENT
  Age: 48 Year
  Sex: Female

DRUGS (1)
  1. QUINAGLUTE [Suspect]
     Indication: ATRIAL TACHYCARDIA
     Dosage: ORAL
     Route: 048
     Dates: start: 19850101, end: 19870101

REACTIONS (7)
  - ARTHRITIS [None]
  - OESOPHAGITIS [None]
  - OSTEOMYELITIS [None]
  - PRURITUS [None]
  - PSORIASIS [None]
  - RASH [None]
  - URTICARIA [None]
